FAERS Safety Report 5981810-6 (Version None)
Quarter: 2008Q4

REPORT INFORMATION
  Report Type: 
  Country: None (occurrence: None)
  Receive Date: 20081205
  Receipt Date: 20081124
  Transmission Date: 20090506
  Serious: Yes (Hospitalization, Other)
  Sender: FDA-Public Use
  Company Number: US-BAXTER-2008BH013011

PATIENT
  Age: 66 Year
  Sex: Male

DRUGS (1)
  1. DIANEAL [Suspect]
     Indication: PERITONEAL DIALYSIS
     Route: 033
     Dates: start: 20060601, end: 20081101

REACTIONS (3)
  - CHOLECYSTITIS INFECTIVE [None]
  - GALLBLADDER PERFORATION [None]
  - PERITONITIS [None]
